FAERS Safety Report 14909140 (Version 1)
Quarter: 2018Q2

REPORT INFORMATION
  Report Type: Spontaneous
  Country: US (occurrence: US)
  Receive Date: 20180517
  Receipt Date: 20180517
  Transmission Date: 20180711
  Serious: No
  Sender: FDA-Public Use
  Company Number: US-PFIZER INC-2018198451

PATIENT
  Age: 83 Year
  Sex: Female
  Weight: 65.76 kg

DRUGS (1)
  1. FUROSEMIDE. [Suspect]
     Active Substance: FUROSEMIDE
     Dosage: 40 MG, DAILY
     Dates: start: 2016

REACTIONS (2)
  - Dysgeusia [Recovering/Resolving]
  - Peripheral swelling [Unknown]
